FAERS Safety Report 7636485-7 (Version None)
Quarter: 2011Q3

REPORT INFORMATION
  Report Type: 
  Country: None (occurrence: None)
  Receive Date: 20110726
  Receipt Date: 20110718
  Transmission Date: 20111222
  Serious: Yes (Hospitalization, Other)
  Sender: FDA-Public Use
  Company Number: US-BAYER-201014061NA

PATIENT
  Age: 38 Year
  Sex: Female

DRUGS (4)
  1. YASMIN [Suspect]
     Indication: ORAL CONTRACEPTION
     Dosage: UNK
     Route: 048
     Dates: start: 20050101, end: 20090101
  2. LOVENOX [Concomitant]
     Dosage: UNK
     Dates: start: 20090201
  3. ANTIBIOTICS [Concomitant]
  4. COUMADIN [Concomitant]
     Dosage: UNK
     Dates: start: 20090201

REACTIONS (6)
  - CHOLECYSTECTOMY [None]
  - UNEVALUABLE EVENT [None]
  - MENORRHAGIA [None]
  - PULMONARY EMBOLISM [None]
  - HYSTERECTOMY [None]
  - ENDOMETRIOSIS [None]
